FAERS Safety Report 7922713-7 (Version None)
Quarter: 2011Q4

REPORT INFORMATION
  Report Type: 
  Country: None (occurrence: None)
  Receive Date: 20111117
  Receipt Date: 20110524
  Transmission Date: 20120403
  Serious: No
  Sender: FDA-Public Use
  Company Number: US-ALLERGAN-1107107US

PATIENT
  Age: 83 Year
  Sex: Female

DRUGS (8)
  1. CALCIUM CITRATE [Concomitant]
     Dosage: 300 MG, BID
  2. COMBIGAN [Suspect]
     Indication: INTRAOCULAR PRESSURE TEST
     Dosage: UNK
     Dates: start: 20100701, end: 20110501
  3. TRIAMTERENE AND HYDROCHLOROTHIAZIDE [Suspect]
  4. COREG [Concomitant]
     Dosage: 3.125 MG, BID
  5. CLARIOTON [Concomitant]
     Dosage: UNK
  6. UNKNOWN MEDICATION SIMILAR TO CARBAMAZEPINE [Concomitant]
     Indication: PRODUCT USED FOR UNKNOWN INDICATION
     Dosage: UNK
  7. GLEEVEC [Suspect]
     Indication: LEUKAEMIA
     Dosage: UNK
     Dates: start: 20080101
  8. VITAMIN D [Concomitant]
     Dosage: UNK

REACTIONS (1)
  - DRUG INEFFECTIVE [None]
